APPROVED DRUG PRODUCT: ALPHAGAN P
Active Ingredient: BRIMONIDINE TARTRATE
Strength: 0.15%
Dosage Form/Route: SOLUTION/DROPS;OPHTHALMIC
Application: N021262 | Product #001 | TE Code: AT
Applicant: ABBVIE INC
Approved: Mar 16, 2001 | RLD: Yes | RS: Yes | Type: RX